FAERS Safety Report 15755530 (Version 1)
Quarter: 2018Q4

REPORT INFORMATION
  Report Type: Spontaneous
  Country: JP (occurrence: JP)
  Receive Date: 20181224
  Receipt Date: 20181224
  Transmission Date: 20190205
  Serious: Yes (Hospitalization)
  Sender: FDA-Public Use
  Company Number: JP-TEVA-2018-JP-991683

PATIENT
  Age: 38 Year
  Sex: Male

DRUGS (2)
  1. PREDNISOLONE. [Concomitant]
     Active Substance: PREDNISOLONE
     Indication: EVIDENCE BASED TREATMENT
     Dosage: IV DRIP OF MORE THAN 200MG OF TOTAL DOSE FOR 2 WEEKS
     Route: 041
  2. ACICLOVIR [Suspect]
     Active Substance: ACYCLOVIR
     Indication: EVIDENCE BASED TREATMENT
     Route: 041

REACTIONS (1)
  - Drug-induced liver injury [Unknown]
